FAERS Safety Report 9513132 (Version 1)
Quarter: 2013Q1

REPORT INFORMATION
  Report Type: Spontaneous
  Country: US (occurrence: None)
  Receive Date: 20130305
  Receipt Date: 20130305
  Transmission Date: 20140127
  Serious: Yes (Other)
  Sender: FDA-Public Use
  Company Number: 163-21880-12052777

PATIENT
  Age: 53 Year
  Sex: Male

DRUGS (2)
  1. REVLIMIB (LENALIDOMIDE) (CAPSULES) [Suspect]
     Indication: PLASMA CELL MYELOMA
     Dosage: 25 MG, X 21 CAPS, PO
     Route: 048
     Dates: start: 20110511
  2. BABY ASPIRIN (ACETYLSALICYLIC ACID) [Concomitant]

REACTIONS (3)
  - Pancytopenia [None]
  - Coordination abnormal [None]
  - Neuropathy peripheral [None]
